FAERS Safety Report 23547437 (Version 1)
Quarter: 2024Q1

REPORT INFORMATION
  Report Type: Report from Study
  Country: US (occurrence: US)
  Receive Date: 20240221
  Receipt Date: 20240221
  Transmission Date: 20240410
  Serious: Yes (Hospitalization)
  Sender: FDA-Public Use
  Company Number: US-ABBVIE-5645437

PATIENT
  Sex: Male

DRUGS (1)
  1. SKYRIZI [Suspect]
     Active Substance: RISANKIZUMAB-RZAA
     Indication: Psoriasis
     Route: 058
     Dates: start: 20230925

REACTIONS (5)
  - Thrombosis [Recovered/Resolved]
  - COVID-19 [Recovered/Resolved]
  - Physical deconditioning [Recovered/Resolved]
  - Clostridium difficile infection [Recovered/Resolved]
  - Chronic obstructive pulmonary disease [Recovered/Resolved]
